FAERS Safety Report 21242071 (Version 1)
Quarter: 2022Q3

REPORT INFORMATION
  Report Type: Spontaneous
  Country: US (occurrence: US)
  Receive Date: 20220823
  Receipt Date: 20220823
  Transmission Date: 20221026
  Serious: Yes (Hospitalization)
  Sender: FDA-Public Use
  Company Number: US-BRISTOL-MYERS SQUIBB COMPANY-2022-090460

PATIENT
  Age: 67 Year
  Sex: Female
  Weight: 119.29 kg

DRUGS (1)
  1. THALOMID [Suspect]
     Active Substance: THALIDOMIDE
     Indication: Myelofibrosis
     Dosage: DAILY AT BEDTIME
     Route: 048

REACTIONS (3)
  - Extremity necrosis [Unknown]
  - Blood test abnormal [Unknown]
  - Product use in unapproved indication [Unknown]
